FAERS Safety Report 7549570-5 (Version None)
Quarter: 2011Q2

REPORT INFORMATION
  Report Type: 
  Country: None (occurrence: None)
  Receive Date: 20110608
  Receipt Date: 20110524
  Transmission Date: 20111010
  Serious: Yes (Hospitalization)
  Sender: FDA-Public Use
  Company Number: DSA_46815_2011

PATIENT
  Age: 89 Year
  Sex: Female

DRUGS (12)
  1. DIGOXIN [Suspect]
     Indication: PRODUCT USED FOR UNKNOWN INDICATION
     Dosage: DF
  2. ENALAPRIL MALEATE [Suspect]
     Indication: PRODUCT USED FOR UNKNOWN INDICATION
     Dosage: 5 MG DAILY, ORAL
     Route: 048
     Dates: end: 20110212
  3. AMLODIPINE [Concomitant]
  4. POTASSIUM CHLORIDE [Concomitant]
  5. FUROSEMIDE [Concomitant]
  6. OXAZEPAM [Concomitant]
  7. DOMPERIDONE [Concomitant]
  8. ATENOLOL [Concomitant]
  9. PANTOPRAZOLE [Concomitant]
  10. GINKGO [Concomitant]
  11. ENALAPRIL MALEATE [Concomitant]
  12. CHOLECALCIFEROL [Concomitant]

REACTIONS (9)
  - DECREASED APPETITE [None]
  - RENAL FAILURE ACUTE [None]
  - RENAL TUBULAR NECROSIS [None]
  - DEHYDRATION [None]
  - DIARRHOEA [None]
  - HYPERKALAEMIA [None]
  - TOXICITY TO VARIOUS AGENTS [None]
  - DRUG INEFFECTIVE [None]
  - NAUSEA [None]
